FAERS Safety Report 8308117 (Version 2)
Quarter: 2013Q4

REPORT INFORMATION
  Report Type: Spontaneous
  Country: US (occurrence: US)
  Receive Date: 20111222
  Receipt Date: 20131209
  Transmission Date: 20140711
  Serious: Yes (Other)
  Sender: FDA-Public Use
  Company Number: US-BAYER-2011-121493

PATIENT
  Age: 47 Year
  Sex: Female

DRUGS (9)
  1. YASMIN [Suspect]
     Dosage: UNK
     Dates: start: 2003, end: 2010
  2. YAZ [Suspect]
     Dosage: UNK
     Dates: start: 2003, end: 2010
  3. AMMONIUM LACTATE [Concomitant]
     Dosage: 2 %, UNK
  4. CIPROFLOXACIN [Concomitant]
     Dosage: 250 MG, 14 DISPENSED
  5. PANTOPRAZOLE [Concomitant]
     Dosage: 40 MG, UNK
  6. PROCTOSOL [Concomitant]
     Dosage: 2.5 UNK, UNK
  7. FISH OIL [Concomitant]
     Dosage: UNK, DAILY
  8. CALCIUM WITH VITAMIN D [Concomitant]
     Dosage: UNK, DAILY
  9. MULTIVITAMIN [Concomitant]
     Dosage: UNK, DAILY

REACTIONS (7)
  - Gallbladder disorder [None]
  - Biliary dyskinesia [None]
  - Cholecystitis [None]
  - Post cholecystectomy syndrome [None]
  - Injury [None]
  - Pain [None]
  - Anxiety [None]
